FAERS Safety Report 7560650-0 (Version None)
Quarter: 2011Q2

REPORT INFORMATION
  Report Type: 
  Country: None (occurrence: None)
  Receive Date: 20110621
  Receipt Date: 20110607
  Transmission Date: 20111010
  Serious: Yes (Other)
  Sender: FDA-Public Use
  Company Number: CA-JNJFOC-20110605174

PATIENT
  Sex: Female
  Weight: 52.8 kg

DRUGS (3)
  1. REMICADE [Suspect]
     Indication: CROHN'S DISEASE
     Route: 042
     Dates: start: 20070507
  2. VENOFER [Concomitant]
     Indication: MINERAL SUPPLEMENTATION
     Route: 042
  3. PREDNISONE [Concomitant]
     Route: 065

REACTIONS (1)
  - HEART RATE IRREGULAR [None]
